FAERS Safety Report 9845953 (Version 1)
Quarter: 2014Q1

REPORT INFORMATION
  Report Type: Spontaneous
  Country: CA (occurrence: CA)
  Receive Date: 20140127
  Receipt Date: 20140127
  Transmission Date: 20141002
  Serious: Yes (Hospitalization, Other)
  Sender: FDA-Public Use
  Company Number: PHHY2014CA008913

PATIENT
  Age: 40 Year
  Sex: Male
  Weight: 66 kg

DRUGS (1)
  1. TEGRETOL [Suspect]
     Dosage: UNK UKN, BID
     Route: 048

REACTIONS (2)
  - Delusion [Recovered/Resolved]
  - Paranoia [Recovered/Resolved]
